FAERS Safety Report 8600733 (Version 4)
Quarter: 2013Q1

REPORT INFORMATION
  Report Type: Spontaneous
  Country: AR (occurrence: AR)
  Receive Date: 20120606
  Receipt Date: 20130315
  Transmission Date: 20140127
  Serious: Yes (Other)
  Sender: FDA-Public Use
  Company Number: PHHY2011AR109854

PATIENT
  Age: 42 Year
  Sex: Female

DRUGS (1)
  1. TASIGNA [Suspect]
     Indication: CHRONIC MYELOID LEUKAEMIA
     Dosage: 800 MG, DAILY
     Route: 048
     Dates: start: 201105

REACTIONS (7)
  - Vaginal haemorrhage [Recovering/Resolving]
  - Gingival swelling [Unknown]
  - Liver disorder [Unknown]
  - Swelling face [Unknown]
  - Hypersensitivity [Unknown]
  - Rash [Unknown]
  - No therapeutic response [Unknown]
